FAERS Safety Report 9705724 (Version 2)
Quarter: 2015Q3

REPORT INFORMATION
  Report Type: Spontaneous
  Country: US (occurrence: US)
  Receive Date: 20131122
  Receipt Date: 20150803
  Transmission Date: 20151125
  Serious: No
  Sender: FDA-Public Use
  Company Number: US-GILEAD-2008-0017769

PATIENT
  Age: 76 Year
  Sex: Female
  Weight: 58.97 kg

DRUGS (24)
  1. MOTILIUM [Concomitant]
     Active Substance: DOMPERIDONE
     Route: 048
  2. MEDROL [Concomitant]
     Active Substance: METHYLPREDNISOLONE
     Dosage: AS DIRECTED
     Route: 048
  3. PLAVIX [Concomitant]
     Active Substance: CLOPIDOGREL BISULFATE
     Route: 048
  4. VERAMYST [Concomitant]
     Active Substance: FLUTICASONE FUROATE
     Dosage: AS DIRECTED
     Route: 045
  5. CELEBREX [Concomitant]
     Active Substance: CELECOXIB
     Route: 048
  6. VASOTEC [Concomitant]
     Active Substance: ENALAPRIL MALEATE
     Route: 048
  7. CLONIDINE. [Concomitant]
     Active Substance: CLONIDINE
     Route: 048
  8. TRIAMTERENE. [Concomitant]
     Active Substance: TRIAMTERENE
     Route: 048
  9. TRICOR [Concomitant]
     Active Substance: FENOFIBRATE
     Route: 048
  10. PREVACID [Concomitant]
     Active Substance: LANSOPRAZOLE
     Route: 048
  11. ASPIRIN. [Concomitant]
     Active Substance: ASPIRIN
     Route: 048
  12. IRON [Concomitant]
     Active Substance: IRON
     Route: 048
  13. ZYRTEC [Concomitant]
     Active Substance: CETIRIZINE HYDROCHLORIDE
     Route: 048
  14. DETROL LA [Concomitant]
     Active Substance: TOLTERODINE TARTRATE
     Route: 048
  15. PHILLIPS MOM [Concomitant]
     Active Substance: MAGNESIUM HYDROXIDE
     Route: 048
  16. METOLAZONE. [Concomitant]
     Active Substance: METOLAZONE
     Dosage: AS DIRECTED
     Route: 048
  17. TYLENOL ARTHRITIS PAIN [Concomitant]
     Active Substance: ACETAMINOPHEN
     Route: 048
  18. CALCITRIOL. [Concomitant]
     Active Substance: CALCITRIOL
     Route: 048
  19. ACTONEL [Concomitant]
     Active Substance: RISEDRONATE SODIUM
     Route: 048
  20. GLUCOSAMINE [Concomitant]
     Active Substance: GLUCOSAMINE
     Route: 048
  21. PROZAC [Concomitant]
     Active Substance: FLUOXETINE HYDROCHLORIDE
     Route: 048
  22. LETAIRIS [Suspect]
     Active Substance: AMBRISENTAN
     Indication: PULMONARY ARTERIAL HYPERTENSION
     Route: 048
     Dates: start: 20071017
  23. AMOXICILLIN. [Concomitant]
     Active Substance: AMOXICILLIN
     Dosage: AS DIRECTED
     Route: 048
  24. NORVASC [Concomitant]
     Active Substance: AMLODIPINE BESYLATE
     Route: 048

REACTIONS (3)
  - Epistaxis [None]
  - Oedema [None]
  - Dyspnoea [None]
